FAERS Safety Report 20254061 (Version 1)
Quarter: 2021Q4

REPORT INFORMATION
  Report Type: Spontaneous
  Country: HR (occurrence: HR)
  Receive Date: 20211230
  Receipt Date: 20211230
  Transmission Date: 20220303
  Serious: Yes (Other)
  Sender: FDA-Public Use
  Company Number: HR-ABBVIE-21K-216-4213632-00

PATIENT
  Age: 18 Year
  Sex: Male

DRUGS (1)
  1. VALPROATE SODIUM [Suspect]
     Active Substance: VALPROATE SODIUM
     Indication: Product used for unknown indication
     Route: 048
     Dates: start: 20180628, end: 20180628

REACTIONS (4)
  - Suicidal ideation [Unknown]
  - Intentional overdose [Unknown]
  - Somnolence [Unknown]
  - Ataxia [Unknown]

NARRATIVE: CASE EVENT DATE: 20180628
